FAERS Safety Report 4388586-7 (Version None)
Quarter: 2004Q2

REPORT INFORMATION
  Report Type: 
  Country: None (occurrence: None)
  Receive Date: 20040624
  Receipt Date: 20040616
  Transmission Date: 20050107
  Serious: Yes (Life-Threatening)
  Sender: FDA-Public Use
  Company Number: 2004040587

PATIENT
  Sex: Male
  Weight: 60 kg

DRUGS (1)
  1. VFEND [Suspect]
     Indication: PULMONARY MYCOSIS
     Dosage: 1D, INTRAVENOUS
     Route: 042

REACTIONS (2)
  - CONDITION AGGRAVATED [None]
  - PULMONARY MYCOSIS [None]
